FAERS Safety Report 20421025 (Version 4)
Quarter: 2022Q1

REPORT INFORMATION
  Report Type: Spontaneous
  Country: ES (occurrence: ES)
  Receive Date: 20220203
  Receipt Date: 20220318
  Transmission Date: 20220423
  Serious: Yes (Other)
  Sender: FDA-Public Use
  Company Number: ES-COVIS PHARMA B.V.-2017COV01599

PATIENT
  Age: 59 Year
  Sex: Male

DRUGS (2)
  1. RILUZOLE [Suspect]
     Active Substance: RILUZOLE
     Indication: Amyotrophic lateral sclerosis
     Route: 065
  2. RILUZOLE [Suspect]
     Active Substance: RILUZOLE
     Indication: Amyotrophic lateral sclerosis

REACTIONS (7)
  - Interstitial lung disease [Recovered/Resolved]
  - Cough [Unknown]
  - Pulmonary mass [Recovered/Resolved]
  - Lung opacity [Recovered/Resolved]
  - Emphysema [Recovered/Resolved]
  - Bronchiectasis [Recovered/Resolved]
  - Toxicity to various agents [Recovered/Resolved]
